FAERS Safety Report 7334868-6 (Version None)
Quarter: 2011Q1

REPORT INFORMATION
  Report Type: 
  Country: None (occurrence: None)
  Receive Date: 20110301
  Receipt Date: 20110301
  Transmission Date: 20110831
  Serious: Yes (Hospitalization)
  Sender: FDA-Public Use
  Company Number: None

PATIENT
  Sex: Female
  Weight: 59.0583 kg

DRUGS (15)
  1. AMLODIPINE [Concomitant]
  2. DOCUSATE SODIUM [Concomitant]
  3. MAGNESIUM OXIDE [Concomitant]
  4. FLUTICASONE PROPIONATE [Concomitant]
  5. CALCIUM CARBONATE [Concomitant]
  6. POLYETHYLENE GLYCOL [Concomitant]
  7. SALMETEROL [Concomitant]
  8. POTASSIUM CHLORIDE [Concomitant]
  9. SODIUM CHLORIDE 0.65% NASAL SPRAY [Concomitant]
  10. TIOTROPIUM [Concomitant]
  11. ESOMEPRAZOLE MAGNESIUM [Concomitant]
  12. IOHEXOL [Concomitant]
  13. OMNIPAQUE 140 [Concomitant]
  14. CISPLATIN [Suspect]
     Indication: SMALL CELL LUNG CANCER STAGE UNSPECIFIED
     Dosage: 100 MG Q 3 WEEKS IV
     Route: 042
     Dates: start: 20110203, end: 20110203
  15. SENNA [Concomitant]

REACTIONS (8)
  - BONE MARROW FAILURE [None]
  - BLOOD POTASSIUM DECREASED [None]
  - BLOOD MAGNESIUM DECREASED [None]
  - RENAL TUBULAR DISORDER [None]
  - ELECTROLYTE IMBALANCE [None]
  - NEPHROPATHY TOXIC [None]
  - BLOOD CALCIUM DECREASED [None]
  - BLOOD ALBUMIN DECREASED [None]
